FAERS Safety Report 4574146-1 (Version None)
Quarter: 2005Q1

REPORT INFORMATION
  Report Type: 
  Country: None (occurrence: None)
  Receive Date: 20050208
  Receipt Date: 20041028
  Transmission Date: 20050727
  Serious: No
  Sender: FDA-Public Use
  Company Number: US-GLAXOSMITHKLINE-A0531765A

PATIENT
  Sex: Female

DRUGS (2)
  1. PAXIL [Suspect]
     Indication: DEPRESSION
     Dosage: 20MG PER DAY
     Route: 048
  2. LORAZEPAM [Concomitant]

REACTIONS (4)
  - DEPRESSION [None]
  - ENERGY INCREASED [None]
  - INSOMNIA [None]
  - MOOD ALTERED [None]
